FAERS Safety Report 24467535 (Version 1)
Quarter: 2024Q4

REPORT INFORMATION
  Report Type: Report from Study
  Country: US (occurrence: US)
  Receive Date: 20241018
  Receipt Date: 20241018
  Transmission Date: 20250115
  Serious: No
  Sender: ROCHE
  Company Number: US-ROCHE-3562918

PATIENT
  Age: 69 Year
  Sex: Female

DRUGS (7)
  1. XOLAIR [Suspect]
     Active Substance: OMALIZUMAB
     Indication: Idiopathic urticaria
     Dosage: 150 MG AUTOINJECTOR?MORE DOSAGE INFORMATION IS 150 MG AUTOINJECTOR?LAST INJECTION RECEIVED ON 15/APR
     Route: 058
  2. THYROID [Concomitant]
     Active Substance: LEVOTHYROXINE\LIOTHYRONINE
     Dosage: 30 MG TABLET
  3. ATORVASTATIN [Concomitant]
     Active Substance: ATORVASTATIN
  4. FLUOCINONIDE [Concomitant]
     Active Substance: FLUOCINONIDE
  5. KETOCONAZOLE [Concomitant]
     Active Substance: KETOCONAZOLE
  6. TERBINAFINE [Concomitant]
     Active Substance: TERBINAFINE\TERBINAFINE HYDROCHLORIDE
  7. WELLBUTRIN [Concomitant]
     Active Substance: BUPROPION HYDROCHLORIDE

REACTIONS (2)
  - No adverse event [Unknown]
  - Off label use [Unknown]
